FAERS Safety Report 8519322-8 (Version None)
Quarter: 2012Q3

REPORT INFORMATION
  Report Type: 
  Country: None (occurrence: None)
  Receive Date: 20120718
  Receipt Date: 20120705
  Transmission Date: 20120928
  Serious: Yes (Other)
  Sender: FDA-Public Use
  Company Number: BR-PFIZER INC-2012169197

PATIENT
  Age: 41 Year
  Sex: Male
  Weight: 78 kg

DRUGS (1)
  1. PANTOPRAZOLE [Suspect]
     Indication: GASTROOESOPHAGEAL REFLUX DISEASE
     Dosage: 40 MG, 1 TABLET DAILY
     Route: 048
     Dates: start: 20120607

REACTIONS (7)
  - FLATULENCE [None]
  - ABDOMINAL RIGIDITY [None]
  - ABDOMINAL PAIN UPPER [None]
  - ABDOMINAL DISTENSION [None]
  - GASTRIC ULCER [None]
  - YELLOW SKIN [None]
  - LIP BLISTER [None]
